FAERS Safety Report 17893086 (Version 1)
Quarter: 2020Q2

REPORT INFORMATION
  Report Type: Spontaneous
  Country: US (occurrence: US)
  Receive Date: 20200614
  Receipt Date: 20200614
  Transmission Date: 20200714
  Serious: No
  Sender: FDA-Public Use
  Company Number: US-ASTRAZENECA-2020SE75586

PATIENT
  Sex: Female

DRUGS (1)
  1. SYMBICORT [Suspect]
     Active Substance: BUDESONIDE\FORMOTEROL FUMARATE DIHYDRATE
     Indication: ASTHMA
     Dosage: 160/4.5, INHALE TWO PUFFS, EVERY 12 HOURS
     Route: 055
     Dates: start: 202004

REACTIONS (7)
  - Wrong technique in product usage process [Unknown]
  - Dyspnoea [Unknown]
  - Product dose omission [Not Recovered/Not Resolved]
  - Intentional product misuse [Unknown]
  - Throat clearing [Unknown]
  - Device leakage [Unknown]
  - Intentional product use issue [Unknown]
